FAERS Safety Report 8047891-3 (Version None)
Quarter: 2012Q1

REPORT INFORMATION
  Report Type: 
  Country: None (occurrence: None)
  Receive Date: 20120116
  Receipt Date: 20110930
  Transmission Date: 20120608
  Serious: Yes (Hospitalization)
  Sender: FDA-Public Use
  Company Number: US-BAYER-2011-123773

PATIENT
  Age: 68 Year
  Sex: Male

DRUGS (2)
  1. DABIGATRAN [Suspect]
     Dosage: 150 MG, BID
     Route: 048
  2. ALEVE (CAPLET) [Suspect]
     Indication: BACK PAIN
     Dosage: DAILY DOSE 4 DF
     Route: 048

REACTIONS (1)
  - GASTROINTESTINAL HAEMORRHAGE [None]
